FAERS Safety Report 7640878-1 (Version None)
Quarter: 2011Q3

REPORT INFORMATION
  Report Type: 
  Country: None (occurrence: None)
  Receive Date: 20110728
  Receipt Date: 20110728
  Transmission Date: 20111222
  Serious: Yes (Other)
  Sender: FDA-Public Use
  Company Number: None

PATIENT
  Age: 42 Year
  Sex: Female
  Weight: 58.967 kg

DRUGS (2)
  1. CYMBALTA [Suspect]
     Indication: FIBROMYALGIA
     Dosage: 30 MG
     Route: 048
  2. CYMBALTA [Concomitant]
     Dosage: 60 MG
     Route: 048

REACTIONS (9)
  - DIZZINESS [None]
  - THINKING ABNORMAL [None]
  - MARITAL PROBLEM [None]
  - SLEEP DISORDER [None]
  - PARAESTHESIA [None]
  - NAUSEA [None]
  - IMPAIRED WORK ABILITY [None]
  - DISTURBANCE IN ATTENTION [None]
  - DRUG WITHDRAWAL SYNDROME [None]
